FAERS Safety Report 6344285-3 (Version None)
Quarter: 2009Q3

REPORT INFORMATION
  Report Type: 
  Country: None (occurrence: None)
  Receive Date: 20090908
  Receipt Date: 20090908
  Transmission Date: 20100115
  Serious: Yes (Death, Other)
  Sender: FDA-Public Use
  Company Number: US-ROXANE LABORATORIES, INC.-2009-RO-00912RO

PATIENT
  Sex: Male
  Weight: 78 kg

DRUGS (4)
  1. ALPRAZOLAM INTENSOL [ORAL SOLUTION (CONCENTRATE)] 1 MG/ML [Suspect]
     Indication: BIPOLAR DISORDER
  2. OPANA [Suspect]
     Route: 045
  3. TRAMADOL HCL [Suspect]
     Indication: PAIN
  4. LORTAB [Suspect]
     Indication: PAIN

REACTIONS (7)
  - BRAIN OEDEMA [None]
  - DRUG TOXICITY [None]
  - INCORRECT ROUTE OF DRUG ADMINISTRATION [None]
  - OVERDOSE [None]
  - PETECHIAE [None]
  - THYMUS DISORDER [None]
  - UNRESPONSIVE TO STIMULI [None]
